FAERS Safety Report 4576143-9 (Version None)
Quarter: 2005Q1

REPORT INFORMATION
  Report Type: 
  Country: None (occurrence: None)
  Receive Date: 20050201
  Receipt Date: 20050201
  Transmission Date: 20050727
  Serious: Yes (Death)
  Sender: FDA-Public Use
  Company Number: None

PATIENT
  Age: 26 Year
  Sex: Male

DRUGS (2)
  1. IMURAN [Suspect]
     Indication: CROHN'S DISEASE
     Dates: start: 20040911, end: 20041212
  2. REMICADE [Suspect]
     Indication: CROHN'S DISEASE
     Dates: start: 20040911, end: 20041111

REACTIONS (3)
  - PAIN [None]
  - PANCYTOPENIA [None]
  - TUBERCULOSIS [None]
